FAERS Safety Report 16378961 (Version 3)
Quarter: 2019Q3

REPORT INFORMATION
  Report Type: Report from Study
  Country: US (occurrence: US)
  Receive Date: 20190531
  Receipt Date: 20190906
  Transmission Date: 20191004
  Serious: No
  Sender: FDA-Public Use
  Company Number: US-SA-2019SA149731

PATIENT
  Age: 67 Year
  Sex: Male

DRUGS (2)
  1. ALIROCUMAB [Suspect]
     Active Substance: ALIROCUMAB
     Indication: BLOOD CHOLESTEROL INCREASED
     Dosage: 150 MG, QOW
     Route: 058
     Dates: start: 20190430
  2. FLOMAX [MORNIFLUMATE] [Concomitant]
     Active Substance: MORNIFLUMATE

REACTIONS (10)
  - Quality of life decreased [Unknown]
  - Influenza [Unknown]
  - Feeling abnormal [Unknown]
  - Blood pressure increased [Recovering/Resolving]
  - Prostatic disorder [Recovering/Resolving]
  - Sleep disorder [Recovering/Resolving]
  - Fatigue [Unknown]
  - Nervousness [Recovering/Resolving]
  - Nasopharyngitis [Unknown]
  - Product administered at inappropriate site [Unknown]

NARRATIVE: CASE EVENT DATE: 2019
